FAERS Safety Report 9304779 (Version 2)
Quarter: 2013Q3

REPORT INFORMATION
  Report Type: Spontaneous
  Country: US (occurrence: US)
  Receive Date: 20130523
  Receipt Date: 20130711
  Transmission Date: 20140515
  Serious: No
  Sender: FDA-Public Use
  Company Number: US-009507513-1305USA012638

PATIENT
  Age: 15 Year
  Sex: Female
  Weight: 68.93 kg

DRUGS (1)
  1. IMPLANON [Suspect]
     Indication: CONTRACEPTION
     Dosage: UNK DF, UNK
     Route: 059
     Dates: start: 20110113

REACTIONS (4)
  - Ovarian cyst [Recovered/Resolved]
  - Breast pain [Recovered/Resolved]
  - Vaginal discharge [Recovered/Resolved]
  - Amenorrhoea [Recovered/Resolved]
